FAERS Safety Report 5117911-4 (Version None)
Quarter: 2006Q3

REPORT INFORMATION
  Report Type: 
  Country: None (occurrence: None)
  Receive Date: 20060929
  Receipt Date: 20060919
  Transmission Date: 20061208
  Serious: Yes (Hospitalization)
  Sender: FDA-Public Use
  Company Number: PHHO2006ES15617

PATIENT
  Age: 51 Year
  Sex: Male
  Weight: 73 kg

DRUGS (6)
  1. RAD [Suspect]
     Indication: RENAL TRANSPLANT
     Dosage: 4 MG / DAY
     Route: 048
     Dates: start: 20060715, end: 20060816
  2. NEORAL [Suspect]
     Indication: RENAL TRANSPLANT
     Route: 048
  3. PREDNISONE TAB [Suspect]
     Indication: RENAL TRANSPLANT
     Dosage: 15 MG / DAY
     Route: 048
     Dates: start: 20060609
  4. MYCOPHENOLATE MOFETIL [Suspect]
     Indication: RENAL TRANSPLANT
     Dosage: 2000 MG / DAY
     Route: 048
     Dates: start: 20060714, end: 20060816
  5. CO-TRIMOXAZOLE [Suspect]
     Indication: INFECTION PROPHYLAXIS
     Dosage: 400
     Route: 048
     Dates: start: 20060611, end: 20060816
  6. VALGANCICLOVIR HCL [Suspect]
     Indication: INFECTION PROPHYLAXIS
     Dosage: 450 MG, QD
     Route: 048
     Dates: start: 20060612, end: 20060816

REACTIONS (3)
  - LEUKOPENIA [None]
  - NEUTROPENIA [None]
  - PYREXIA [None]
